FAERS Safety Report 21068834 (Version 2)
Quarter: 2022Q3

REPORT INFORMATION
  Report Type: Spontaneous
  Country: CN (occurrence: CN)
  Receive Date: 20220712
  Receipt Date: 20220718
  Transmission Date: 20221027
  Serious: Yes (Life-Threatening, Hospitalization, Other)
  Sender: FDA-Public Use
  Company Number: CN-BRACCO-2022CN02529

PATIENT
  Age: 76 Year
  Sex: Female

DRUGS (1)
  1. MULTIHANCE [Suspect]
     Active Substance: GADOBENATE DIMEGLUMINE
     Indication: Magnetic resonance imaging abdominal
     Dosage: 13 ML, SINGLE
     Route: 042
     Dates: start: 20220629, end: 20220629

REACTIONS (7)
  - Shock [Recovering/Resolving]
  - Ventricular tachycardia [Recovering/Resolving]
  - Syncope [Recovering/Resolving]
  - Headache [Recovering/Resolving]
  - Hypoaesthesia [Recovering/Resolving]
  - Rash [Recovering/Resolving]
  - Erythema [Recovering/Resolving]

NARRATIVE: CASE EVENT DATE: 20220529
